FAERS Safety Report 16843725 (Version 1)
Quarter: 2019Q3

REPORT INFORMATION
  Report Type: Spontaneous
  Country: GB (occurrence: GB)
  Receive Date: 20190924
  Receipt Date: 20190924
  Transmission Date: 20191005
  Serious: Yes (Death, Other)
  Sender: FDA-Public Use
  Company Number: GB-SA-2019SA227035

PATIENT
  Age: 68 Year
  Sex: Male
  Weight: 71.6 kg

DRUGS (2)
  1. FABRAZYME [Suspect]
     Active Substance: AGALSIDASE BETA
     Indication: FABRY^S DISEASE
     Dosage: 70 MG, QOW
     Route: 041
  2. WARFARIN [Concomitant]
     Active Substance: WARFARIN
     Route: 065

REACTIONS (7)
  - Rash [Fatal]
  - Cerebral hypoperfusion [Fatal]
  - Multiple organ dysfunction syndrome [Fatal]
  - Renal ischaemia [Fatal]
  - Sepsis [Fatal]
  - Hypotension [Fatal]
  - Cerebral infarction [Fatal]

NARRATIVE: CASE EVENT DATE: 201908
